FAERS Safety Report 7444248-0 (Version None)
Quarter: 2011Q2

REPORT INFORMATION
  Report Type: 
  Country: None (occurrence: None)
  Receive Date: 20110419
  Receipt Date: 20110404
  Transmission Date: 20111010
  Serious: Yes (Hospitalization, Other)
  Sender: FDA-Public Use
  Company Number: AUR-APL-2011-01249

PATIENT
  Age: 79 Year
  Sex: Female

DRUGS (9)
  1. RAMIPRIL [Suspect]
     Dates: end: 20100426
  2. FRAGMIN [Concomitant]
  3. ACETAMINOPHEN [Concomitant]
  4. NEXIUM [Concomitant]
  5. ACTOS [Concomitant]
  6. METFORMIN HCL [Suspect]
  7. CRESTOR [Concomitant]
  8. MOTILIUM [Concomitant]
  9. TRAMADOL HCL [Concomitant]

REACTIONS (15)
  - FAECES DISCOLOURED [None]
  - LACTIC ACIDOSIS [None]
  - DEHYDRATION [None]
  - BLOOD PRESSURE SYSTOLIC INCREASED [None]
  - RENAL FAILURE ACUTE [None]
  - VOMITING [None]
  - HYPERKALAEMIA [None]
  - ATRIOVENTRICULAR BLOCK [None]
  - HEART RATE DECREASED [None]
  - DIALYSIS [None]
  - GASTROINTESTINAL HAEMORRHAGE [None]
  - HEART RATE INCREASED [None]
  - BODY TEMPERATURE DECREASED [None]
  - CARDIAC MURMUR [None]
  - BUNDLE BRANCH BLOCK RIGHT [None]
